FAERS Safety Report 4375142-X (Version None)
Quarter: 2004Q2

REPORT INFORMATION
  Report Type: 
  Country: None (occurrence: None)
  Receive Date: 20040603
  Receipt Date: 20040524
  Transmission Date: 20050107
  Serious: Yes (Hospitalization)
  Sender: FDA-Public Use
  Company Number: DE-JNJFOC-20040505702

PATIENT
  Sex: Female

DRUGS (1)
  1. REMICADE [Suspect]
     Indication: RHEUMATOID ARTHRITIS
     Dosage: CUMULTATIVE DOSE: 1200 MG
     Dates: start: 20040101

REACTIONS (2)
  - RHEUMATOID NODULE [None]
  - TENDON DISORDER [None]
